FAERS Safety Report 5701434-5 (Version None)
Quarter: 2008Q2

REPORT INFORMATION
  Report Type: 
  Country: None (occurrence: None)
  Receive Date: 20080407
  Receipt Date: 20080325
  Transmission Date: 20081010
  Serious: Yes (Hospitalization, Other)
  Sender: FDA-Public Use
  Company Number: 2008SP006022

PATIENT
  Age: 21 Month
  Sex: Male

DRUGS (1)
  1. DESLORATADINE [Suspect]
     Indication: SEASONAL ALLERGY
     Dosage: PO
     Route: 048

REACTIONS (3)
  - CONVULSION [None]
  - PYREXIA [None]
  - VIRAL INFECTION [None]
